FAERS Safety Report 9652167 (Version 1)
Quarter: 2013Q4

REPORT INFORMATION
  Report Type: Spontaneous
  Country: US (occurrence: US)
  Receive Date: 20131029
  Receipt Date: 20131029
  Transmission Date: 20140711
  Serious: No
  Sender: FDA-Public Use
  Company Number: US-009507513-1310USA012616

PATIENT
  Sex: Male

DRUGS (2)
  1. JANUVIA [Suspect]
  2. BYETTA [Suspect]

REACTIONS (3)
  - Nausea [Unknown]
  - Abdominal discomfort [Unknown]
  - Pain [Unknown]
